FAERS Safety Report 10464339 (Version 1)
Quarter: 2014Q3

REPORT INFORMATION
  Report Type: Spontaneous
  Country: US (occurrence: US)
  Receive Date: 20140919
  Receipt Date: 20140919
  Transmission Date: 20150326
  Serious: Yes (Congenital Anomaly, Other)
  Sender: FDA-Public Use
  Company Number: US-ABBVIE-14P-163-1285606-00

PATIENT

DRUGS (1)
  1. DEPAKOTE [Suspect]
     Active Substance: DIVALPROEX SODIUM
     Indication: MATERNAL EXPOSURE TIMING UNSPECIFIED
     Route: 064

REACTIONS (14)
  - Anxiety [Unknown]
  - Mental impairment [Unknown]
  - Pain [Unknown]
  - Social problem [Unknown]
  - Deformity [Unknown]
  - Physical disability [Unknown]
  - Foetal exposure during pregnancy [Unknown]
  - Impaired work ability [Unknown]
  - Life expectancy shortened [Unknown]
  - Economic problem [Unknown]
  - Anhedonia [Unknown]
  - Injury [Unknown]
  - Congenital anomaly [Unknown]
  - Tension [Unknown]
